FAERS Safety Report 18642272 (Version 2)
Quarter: 2022Q1

REPORT INFORMATION
  Report Type: Report from Study
  Country: KR (occurrence: None)
  Receive Date: 20201221
  Receipt Date: 20220128
  Transmission Date: 20220423
  Serious: Yes (Hospitalization)
  Sender: FDA-Public Use
  Company Number: KR-EISAI MEDICAL RESEARCH-EC-2020-085501

PATIENT
  Age: 56 Year
  Sex: Male
  Weight: 67.2 kg

DRUGS (17)
  1. LENVIMA [Suspect]
     Active Substance: LENVATINIB
     Indication: Hepatocellular carcinoma
     Route: 048
     Dates: start: 20201019, end: 20201130
  2. AMLODIPINE BESYLATE\OLMESARTAN MEDOXOMIL [Concomitant]
     Active Substance: AMLODIPINE BESYLATE\OLMESARTAN MEDOXOMIL
     Indication: Hypertension
     Dosage: 5/20MG
     Route: 048
     Dates: start: 20201124
  3. BARACLUDE [Concomitant]
     Active Substance: ENTECAVIR
     Indication: Hepatitis B
     Route: 048
     Dates: start: 20140912
  4. CILOSTAN CR [Concomitant]
     Indication: Prophylaxis
     Route: 048
     Dates: start: 20190405
  5. TRESIBA [Concomitant]
     Active Substance: INSULIN DEGLUDEC
     Indication: Diabetes mellitus
     Dosage: 21 TABS 300 UNIT/3ML
     Route: 058
     Dates: start: 20190322
  6. GLUCOBAY [Concomitant]
     Active Substance: ACARBOSE
     Indication: Diabetes mellitus
     Route: 048
     Dates: start: 20190220
  7. GASTER [Concomitant]
     Active Substance: FAMOTIDINE
     Indication: Gastric ulcer
     Route: 048
     Dates: start: 20200405
  8. ITOPRIDE [Concomitant]
     Active Substance: ITOPRIDE
     Indication: Gastric ulcer
     Route: 048
     Dates: start: 20201123, end: 20201130
  9. ATIVAN [Concomitant]
     Active Substance: LORAZEPAM
     Indication: Insomnia
     Route: 048
     Dates: start: 20201123, end: 20201129
  10. HEPA-MERZ [Concomitant]
     Indication: Hepatic cirrhosis
     Route: 048
     Dates: start: 20201205
  11. LASIX [Concomitant]
     Active Substance: FUROSEMIDE
     Indication: Ascites
     Route: 048
     Dates: start: 20201204
  12. TIRAMIDE [Concomitant]
     Indication: Diarrhoea
     Route: 048
     Dates: start: 20201211
  13. SMECTA [Concomitant]
     Active Substance: MONTMORILLONITE
     Indication: Diarrhoea
     Route: 048
     Dates: start: 20201211
  14. MEQUITAZINE [Concomitant]
     Active Substance: MEQUITAZINE
     Indication: Pruritus
     Route: 048
     Dates: start: 20201211
  15. ATIVAN [Concomitant]
     Active Substance: LORAZEPAM
     Indication: Insomnia
     Route: 048
     Dates: start: 20201218
  16. DOMPERIDONE MALEATE [Concomitant]
     Active Substance: DOMPERIDONE MALEATE
     Indication: Nausea
     Route: 048
     Dates: start: 20201221
  17. RABEPRAZOLE SODIUM [Concomitant]
     Active Substance: RABEPRAZOLE SODIUM
     Indication: Nausea
     Route: 048
     Dates: start: 20201221

REACTIONS (1)
  - Hepatic encephalopathy [Recovered/Resolved]

NARRATIVE: CASE EVENT DATE: 20201130
